FAERS Safety Report 6000075-2 (Version None)
Quarter: 2008Q4

REPORT INFORMATION
  Report Type: 
  Country: None (occurrence: None)
  Receive Date: 20081215
  Receipt Date: 20081204
  Transmission Date: 20090506
  Serious: Yes (Hospitalization)
  Sender: FDA-Public Use
  Company Number: B0549059A

PATIENT
  Age: 69 Year
  Sex: Male

DRUGS (10)
  1. AUGMENTIN '125' [Suspect]
     Indication: ERYSIPELAS
     Dosage: 1G THREE TIMES PER DAY
     Route: 048
     Dates: start: 20081024, end: 20081027
  2. LEXOMIL [Suspect]
     Dosage: 3MG PER DAY
     Route: 048
  3. DEROXAT [Concomitant]
     Dosage: 20MG PER DAY
     Route: 048
  4. DETENSIEL [Concomitant]
     Dosage: 10MG PER DAY
     Route: 048
  5. ADALAT [Concomitant]
     Dosage: 10MG PER DAY
     Route: 048
  6. NOVOLOG MIX 70/30 [Concomitant]
     Route: 058
  7. TRIATEC [Concomitant]
     Dosage: 5MG TWICE PER DAY
     Route: 048
  8. ESIDRIX [Concomitant]
     Dosage: 12.5MG TWICE PER DAY
     Route: 048
  9. TARDYFERON [Concomitant]
     Dosage: 80MG THREE TIMES PER DAY
     Route: 048
  10. GLUCOPHAGE [Concomitant]
     Dosage: 1000MG THREE TIMES PER DAY
     Route: 048

REACTIONS (7)
  - ABDOMINAL PAIN [None]
  - CLOSTRIDIUM DIFFICILE COLITIS [None]
  - DRUG INTERACTION [None]
  - FAECES DISCOLOURED [None]
  - GASTROENTERITIS [None]
  - PSEUDOMEMBRANOUS COLITIS [None]
  - VOMITING [None]
